FAERS Safety Report 8492602 (Version 3)
Quarter: 2015Q1

REPORT INFORMATION
  Report Type: Report from Study
  Country: FR (occurrence: FR)
  Receive Date: 20120403
  Receipt Date: 20150204
  Transmission Date: 20150721
  Serious: Yes (Hospitalization)
  Sender: FDA-Public Use
  Company Number: FR-ROCHE-1042599

PATIENT
  Age: 73 Year
  Sex: Male
  Weight: 70 kg

DRUGS (5)
  1. 5-FU [Suspect]
     Active Substance: FLUOROURACIL
     Dosage: LAST DOSE WAS ADMINISTERED ON 04/MAR/2012 AND THE DOSE WAS 2900 MG, CYCLE 9
     Route: 041
     Dates: start: 20111118
  2. OXALIPLATIN. [Suspect]
     Active Substance: OXALIPLATIN
     Indication: COLORECTAL CANCER METASTATIC
     Dosage: LAST DOSE WAS ADMINISTERED ON 02/MAR/2012 AND THE DOSE WAS 100 MG, CYCLE 9
     Route: 042
     Dates: start: 20111118
  3. ELVORINE [Suspect]
     Active Substance: LEUCOVORIN CALCIUM
     Indication: COLORECTAL CANCER METASTATIC
     Dosage: LAST DOSE WAS ADMINISTERED ON 02/MAR/2012 AND THE DOSE WAS 320 MG, CYCLE 9
     Route: 042
     Dates: start: 20111118
  4. 5-FU [Suspect]
     Active Substance: FLUOROURACIL
     Indication: COLORECTAL CANCER METASTATIC
     Dosage: LAST DOSE WAS ADMINISTERED ON 10/FEB/2012 AND THE DOSE WAS 690 MG, CYCLE 9
     Route: 040
     Dates: start: 20111118
  5. BEVACIZUMAB [Suspect]
     Active Substance: BEVACIZUMAB
     Indication: COLORECTAL CANCER METASTATIC
     Dosage: LAST DOSE WAS ADMINISTERED ON 02/MAR/2012 AND THE DOSE WAS 300 MG, CYCLE 9
     Route: 042
     Dates: start: 20111118

REACTIONS (3)
  - Lung infection [Not Recovered/Not Resolved]
  - Lung disorder [Not Recovered/Not Resolved]
  - Febrile neutropenia [Recovered/Resolved]

NARRATIVE: CASE EVENT DATE: 20120215
